FAERS Safety Report 17115894 (Version 4)
Quarter: 2022Q4

REPORT INFORMATION
  Report Type: Spontaneous
  Country: US (occurrence: US)
  Receive Date: 20191205
  Receipt Date: 20221123
  Transmission Date: 20230112
  Serious: No
  Sender: FDA-Public Use
  Company Number: US-PFIZER INC-2019496099

PATIENT
  Age: 73 Year
  Sex: Female
  Weight: 65.76 kg

DRUGS (2)
  1. SKELAXIN [Suspect]
     Active Substance: METAXALONE
     Indication: Muscle relaxant therapy
     Dosage: 800 MG, AS NEEDED
     Route: 048
     Dates: start: 2009, end: 201910
  2. SKELAXIN [Suspect]
     Active Substance: METAXALONE
     Indication: Back disorder
     Dosage: 800 MG (ONE-TWO DAY)
     Dates: start: 2018

REACTIONS (3)
  - Pain [Unknown]
  - Insomnia [Unknown]
  - Off label use [Unknown]
